FAERS Safety Report 17220293 (Version 1)
Quarter: 2019Q4

REPORT INFORMATION
  Report Type: Spontaneous
  Country: US (occurrence: US)
  Receive Date: 20191231
  Receipt Date: 20191231
  Transmission Date: 20200122
  Serious: Yes (Hospitalization, Other)
  Sender: FDA-Public Use
  Company Number: US-ASTRAZENECA-2019SF88529

PATIENT
  Age: 73 Year
  Sex: Male
  Weight: 87.1 kg

DRUGS (4)
  1. BYDUREON BCISE [Suspect]
     Active Substance: EXENATIDE
     Indication: TYPE 2 DIABETES MELLITUS
     Route: 058
     Dates: start: 2017
  2. GLUCOTROL [Concomitant]
     Active Substance: GLIPIZIDE
     Indication: TYPE 2 DIABETES MELLITUS
     Route: 048
     Dates: start: 201904
  3. BYETTA [Suspect]
     Active Substance: EXENATIDE
     Indication: TYPE 2 DIABETES MELLITUS
     Dosage: DAILY
     Route: 058
     Dates: start: 2014
  4. GLYPIZIDE XL [Concomitant]
     Indication: TYPE 2 DIABETES MELLITUS
     Route: 048
     Dates: start: 201904

REACTIONS (10)
  - Pneumonia [Recovering/Resolving]
  - Liver disorder [Unknown]
  - Renal disorder [Unknown]
  - Device leakage [Unknown]
  - Arrhythmia supraventricular [Unknown]
  - Pulmonary necrosis [Unknown]
  - Atrial fibrillation [Not Recovered/Not Resolved]
  - Infectious pleural effusion [Unknown]
  - Osteoarthritis [Unknown]
  - Incorrect dose administered by product [Unknown]

NARRATIVE: CASE EVENT DATE: 2017
